FAERS Safety Report 6389036-1 (Version None)
Quarter: 2009Q4

REPORT INFORMATION
  Report Type: 
  Country: None (occurrence: None)
  Receive Date: 20091001
  Receipt Date: 20090922
  Transmission Date: 20100525
  Serious: Yes (Life-Threatening, Hospitalization)
  Sender: FDA-Public Use
  Company Number: ADR27682009

PATIENT
  Age: 46 Year
  Sex: Male

DRUGS (6)
  1. SIMVASTATIN [Suspect]
     Indication: HYPERCHOLESTEROLAEMIA
     Dosage: 40 MG
     Route: 048
  2. TRITACE [Concomitant]
  3. ZAPONEX [Concomitant]
  4. ACETYSALICYLIC ACID [Concomitant]
  5. AMISULPRIDE [Concomitant]
  6. ATENOLOL [Concomitant]

REACTIONS (6)
  - ABDOMINAL DISTENSION [None]
  - DEHYDRATION [None]
  - FALL [None]
  - HYPOTENSION [None]
  - PANCREATITIS [None]
  - RENAL FAILURE ACUTE [None]
